FAERS Safety Report 9252973 (Version 1)
Quarter: 2013Q2

REPORT INFORMATION
  Report Type: Spontaneous
  Country: FR (occurrence: FR)
  Receive Date: 20130424
  Receipt Date: 20130424
  Transmission Date: 20140414
  Serious: Yes (Hospitalization)
  Sender: FDA-Public Use
  Company Number: FR-TEVA-398938ISR

PATIENT
  Age: 63 Year
  Sex: Female

DRUGS (4)
  1. OXALIPLATIN TEVA 5 MG/ML, SOLUTION ? DILUER POUR PERFUSION [Suspect]
     Dosage: 115 MILLIGRAM DAILY;
     Route: 041
     Dates: start: 20130207, end: 20130207
  2. GEMZAR 1000 MG, POUDRE POUR SOLUTION POUR PERFUSION [Concomitant]
     Dosage: 1150 MILLIGRAM DAILY;
     Route: 041
     Dates: start: 20130207, end: 20130207
  3. METHYLPREDNISOLONE MERCK [Concomitant]
     Indication: PREMEDICATION
  4. ZOPHREN [Concomitant]
     Indication: PREMEDICATION

REACTIONS (4)
  - Dyspnoea [Recovered/Resolved]
  - Dysphonia [Recovered/Resolved]
  - Vertigo [Recovered/Resolved]
  - Infusion related reaction [Recovered/Resolved]
